FAERS Safety Report 5228549-2 (Version None)
Quarter: 2007Q1

REPORT INFORMATION
  Report Type: 
  Country: None (occurrence: None)
  Receive Date: 20070205
  Receipt Date: 20070129
  Transmission Date: 20070707
  Serious: Yes (Life-Threatening, Hospitalization, Other)
  Sender: FDA-Public Use
  Company Number: DE-BRISTOL-MYERS SQUIBB COMPANY-13562293

PATIENT
  Age: 22 Year
  Sex: Female
  Weight: 75 kg

DRUGS (4)
  1. BESPAR [Suspect]
     Route: 048
     Dates: start: 20061031, end: 20061031
  2. ATOSIL [Suspect]
     Route: 048
     Dates: start: 20061031, end: 20061031
  3. VALPROATE SODIUM [Suspect]
     Route: 048
     Dates: start: 20061031, end: 20061031
  4. CITALOPRAM HYDROBROMIDE [Concomitant]

REACTIONS (4)
  - DRY MOUTH [None]
  - FATIGUE [None]
  - MULTIPLE DRUG OVERDOSE [None]
  - SUICIDE ATTEMPT [None]
